FAERS Safety Report 7407750-3 (Version None)
Quarter: 2011Q2

REPORT INFORMATION
  Report Type: 
  Country: None (occurrence: None)
  Receive Date: 20110412
  Receipt Date: 20110103
  Transmission Date: 20111010
  Serious: Yes (Death)
  Sender: FDA-Public Use
  Company Number: US-BAYER-2011-002349

PATIENT
  Age: 41 Year
  Sex: Female

DRUGS (5)
  1. ACETAMINOPHEN AND HYDROCODONE BITARTRATE [Suspect]
     Route: 048
  2. ALPRAZOLAM [Suspect]
  3. CLONAZEPAM [Suspect]
     Route: 048
  4. PARACETAMOL + DIPHENHYDRAMINE [Suspect]
     Route: 048
  5. CARISOPRODOL [Suspect]
     Route: 048

REACTIONS (3)
  - RESPIRATORY ARREST [None]
  - CARDIAC ARREST [None]
  - TOXICITY TO VARIOUS AGENTS [None]
